FAERS Safety Report 25945006 (Version 1)
Quarter: 2025Q4

REPORT INFORMATION
  Report Type: Spontaneous
  Country: US (occurrence: US)
  Receive Date: 20251021
  Receipt Date: 20251021
  Transmission Date: 20260118
  Serious: No
  Sender: Phathom Pharmaceuticals
  Company Number: US-PHATHOM PHARMACEUTICALS INC.-2025PHT01967

PATIENT
  Age: 71 Year
  Sex: Male

DRUGS (10)
  1. VOQUEZNA [Suspect]
     Active Substance: VONOPRAZAN FUMARATE
     Dosage: 20 MG, 1X/DAY
     Route: 048
     Dates: start: 20250315, end: 2025
  2. VOQUEZNA [Suspect]
     Active Substance: VONOPRAZAN FUMARATE
     Dosage: 10 MG (HALF TAB), 1X/DAY
     Route: 048
     Dates: start: 2025
  3. VIAGRA [Concomitant]
     Active Substance: SILDENAFIL CITRATE
  4. BUFFERIN [Concomitant]
     Active Substance: ASPIRIN
  5. CEFDINIR [Concomitant]
     Active Substance: CEFDINIR
  6. HYDROXYCHLOROQUINE [Concomitant]
     Active Substance: HYDROXYCHLOROQUINE
  7. TIZANIDINE [Concomitant]
     Active Substance: TIZANIDINE
  8. SILODOSIN [Concomitant]
     Active Substance: SILODOSIN
  9. ROPINIROLE [Concomitant]
     Active Substance: ROPINIROLE
  10. GABAPENTIN [Concomitant]
     Active Substance: GABAPENTIN

REACTIONS (2)
  - Musculoskeletal stiffness [Unknown]
  - Wrong technique in product usage process [Not Recovered/Not Resolved]

NARRATIVE: CASE EVENT DATE: 20250101
